FAERS Safety Report 5879478-2 (Version None)
Quarter: 2008Q3

REPORT INFORMATION
  Report Type: 
  Country: None (occurrence: None)
  Receive Date: 20080911
  Receipt Date: 20080911
  Transmission Date: 20090109
  Serious: No
  Sender: FDA-Public Use
  Company Number: None

PATIENT
  Age: 50 Year
  Sex: Female
  Weight: 89.3586 kg

DRUGS (1)
  1. LYRICA [Suspect]
     Indication: TRIGEMINAL NEURALGIA
     Dosage: 100 MG 2X DAILY PO
     Route: 048
     Dates: start: 20070410, end: 20080910

REACTIONS (4)
  - DEPRESSION [None]
  - DIZZINESS [None]
  - SUICIDAL IDEATION [None]
  - WEIGHT INCREASED [None]
